FAERS Safety Report 25817736 (Version 1)
Quarter: 2025Q3

REPORT INFORMATION
  Report Type: Spontaneous
  Country: CN (occurrence: CN)
  Receive Date: 20250918
  Receipt Date: 20250918
  Transmission Date: 20251021
  Serious: Yes (Life-Threatening)
  Sender: BAYER HEALTHCARE PHARMACEUTICALS INC.
  Company Number: CN-BAYER-2025A123790

PATIENT
  Age: 76 Year
  Sex: Female
  Weight: 56 kg

DRUGS (3)
  1. ULTRAVIST [Suspect]
     Active Substance: IOPROMIDE
     Indication: Abdomen scan
     Route: 042
     Dates: start: 20250910, end: 20250910
  2. ULTRAVIST [Suspect]
     Active Substance: IOPROMIDE
     Indication: Abdominal pain
  3. ULTRAVIST [Suspect]
     Active Substance: IOPROMIDE
     Indication: Hepatic cyst

REACTIONS (8)
  - Shock [Recovering/Resolving]
  - Blood pressure decreased [None]
  - Foaming at mouth [Recovering/Resolving]
  - Hyperhidrosis [Recovering/Resolving]
  - Nausea [Recovering/Resolving]
  - Discomfort [Recovering/Resolving]
  - Peripheral coldness [Recovering/Resolving]
  - Respiratory rate increased [None]

NARRATIVE: CASE EVENT DATE: 20250910
